FAERS Safety Report 8476872 (Version 2)
Quarter: 2014Q2

REPORT INFORMATION
  Report Type: Spontaneous
  Country: US (occurrence: US)
  Receive Date: 20120326
  Receipt Date: 20140623
  Transmission Date: 20141212
  Serious: Yes (Life-Threatening, Congenital Anomaly, Other)
  Sender: FDA-Public Use
  Company Number: US-ELI_LILLY_AND_COMPANY-US201203004354

PATIENT
  Sex: Female

DRUGS (2)
  1. PROZAC [Suspect]
     Indication: PRODUCT USED FOR UNKNOWN INDICATION
     Route: 064
  2. PROZAC [Suspect]
     Indication: PRODUCT USED FOR UNKNOWN INDICATION
     Route: 064

REACTIONS (12)
  - Coarctation of the aorta [Unknown]
  - Bicuspid aortic valve [Unknown]
  - Limb malformation [Unknown]
  - Patent ductus arteriosus [Unknown]
  - Cardiac murmur [Unknown]
  - Inguinal hernia [Unknown]
  - Atrial septal defect [Unknown]
  - Aortic valve stenosis [Unknown]
  - Premature baby [Unknown]
  - Asthma [Unknown]
  - Foetal exposure during pregnancy [Recovered/Resolved with Sequelae]
  - Attention deficit/hyperactivity disorder [Unknown]
